FAERS Safety Report 4818765-3 (Version None)
Quarter: 2005Q4

REPORT INFORMATION
  Report Type: 
  Country: None (occurrence: None)
  Receive Date: 20051101
  Receipt Date: 20051025
  Transmission Date: 20060501
  Serious: Yes (Other)
  Sender: FDA-Public Use
  Company Number: 218884

PATIENT
  Age: 78 Year
  Sex: Female

DRUGS (4)
  1. HERCEPTIN [Suspect]
     Dosage: 430 MG,
  2. TAXOTERE [Concomitant]
  3. BENADRYL [Concomitant]
  4. TYLENOL (ACETAMINOPHEN) [Concomitant]

REACTIONS (1)
  - ANAPHYLACTIC REACTION [None]
